FAERS Safety Report 7895992-2 (Version None)
Quarter: 2011Q4

REPORT INFORMATION
  Report Type: 
  Country: None (occurrence: None)
  Receive Date: 20111102
  Receipt Date: 20111020
  Transmission Date: 20120403
  Serious: Yes (Congenital Anomaly, Other)
  Sender: FDA-Public Use
  Company Number: AUR-APL-2011-05600

PATIENT
  Sex: Male
  Weight: 0.425 kg

DRUGS (6)
  1. COMBIVIR [Suspect]
     Indication: ANTIVIRAL TREATMENT
     Dosage: TRANSPLACENTAL
     Route: 064
     Dates: start: 20110421, end: 20110915
  2. ZIDOVUDINE [Suspect]
     Indication: ANTIVIRAL TREATMENT
     Dosage: TRANSPLACENTAL
     Route: 064
     Dates: start: 20110915, end: 20110915
  3. PREZISTA [Suspect]
     Indication: ANTIVIRAL TREATMENT
     Dosage: 800 MG, 1 D, TRANSPLACENTAL
     Route: 064
     Dates: start: 20110428
  4. NORVIR [Suspect]
     Indication: ANTIVIRAL TREATMENT
     Dosage: 200 MG, 1 D, TRANSPLACENTAL; 100 MG, 1 D, ORAL
     Route: 064
     Dates: start: 20110519
  5. NORVIR [Suspect]
     Indication: ANTIVIRAL TREATMENT
     Dosage: 200 MG, 1 D, TRANSPLACENTAL; 100 MG, 1 D, ORAL
     Route: 064
     Dates: start: 20110428, end: 20110518
  6. KALETRA [Suspect]
     Indication: ANTIVIRAL TREATMENT
     Dosage: TRANSPLACENTAL

REACTIONS (4)
  - FOETAL EXPOSURE DURING PREGNANCY [None]
  - PREMATURE BABY [None]
  - FOETAL GROWTH RESTRICTION [None]
  - CONGENITAL ANOMALY [None]
